FAERS Safety Report 8831581 (Version 1)
Quarter: 2012Q4

REPORT INFORMATION
  Report Type: 
  Country: US (occurrence: US)
  Receive Date: 20121009
  Receipt Date: 20121009
  Transmission Date: 20130627
  Serious: No
  Sender: FDA-Public Use
  Company Number: US-ASTRAZENECA-2012SE76167

PATIENT
  Age: 71 Year
  Sex: Female
  Weight: 73.5 kg

DRUGS (3)
  1. PULMICORT FLEXHALER [Suspect]
     Indication: ASTHMA
     Dosage: 90 MCG 1 PUFF DAILY
     Route: 055
     Dates: start: 2008, end: 2010
  2. PULMICORT FLEXHALER [Suspect]
     Indication: ASTHMA
     Dosage: 90 MCG 2 PUFFS TWO TIMES A DAY
     Route: 055
     Dates: start: 20120903
  3. LISINOPRIL [Suspect]
     Indication: HYPERTENSION
     Route: 048

REACTIONS (9)
  - Chest discomfort [Unknown]
  - Heart rate irregular [Unknown]
  - Viral infection [Unknown]
  - Animal bite [Unknown]
  - Blood cholesterol increased [Unknown]
  - Asthma [Unknown]
  - Cough [Unknown]
  - Drug dose omission [Unknown]
  - Intentional drug misuse [Recovered/Resolved]
